FAERS Safety Report 4311310-0 (Version None)
Quarter: 2004Q1

REPORT INFORMATION
  Report Type: 
  Country: None (occurrence: None)
  Receive Date: 20040302
  Receipt Date: 20040302
  Transmission Date: 20041129
  Serious: Yes (Other)
  Sender: FDA-Public Use
  Company Number: None

PATIENT
  Age: 55 Year
  Sex: Female
  Weight: 74.8435 kg

DRUGS (6)
  1. ZICAM (OTC) [Suspect]
     Indication: FEELING COLD
     Dosage: 2 SQUIRTS NASAL AS DIRECTED
     Route: 045
     Dates: start: 20010101, end: 20040206
  2. OTC ZICAM [Suspect]
  3. OTC ZICAM [Suspect]
  4. OTC ZICAM [Suspect]
  5. OTC ZICAM [Suspect]
  6. OTC ZICAM [Suspect]

REACTIONS (1)
  - ANOSMIA [None]
